FAERS Safety Report 11802274 (Version 1)
Quarter: 2015Q4

REPORT INFORMATION
  Report Type: Spontaneous
  Country: US (occurrence: None)
  Receive Date: 20151203
  Receipt Date: 20151203
  Transmission Date: 20160305
  Serious: Yes (Hospitalization)
  Sender: FDA-Public Use
  Company Number: None

PATIENT
  Age: 59 Year
  Sex: Male
  Weight: 95.07 kg

DRUGS (15)
  1. SIMEPREVIR 150 [Suspect]
     Active Substance: SIMEPREVIR
     Indication: HEPATITIS C
     Dosage: 150 1X DAILY ORAL
     Route: 048
     Dates: start: 20141108, end: 20150123
  2. AMLODIPINE [Concomitant]
     Active Substance: AMLODIPINE BESYLATE
  3. COLACE [Concomitant]
     Active Substance: DOCUSATE SODIUM
  4. MIRAUVX [Concomitant]
  5. TRAZODONE [Concomitant]
     Active Substance: TRAZODONE HYDROCHLORIDE
  6. COREG [Concomitant]
     Active Substance: CARVEDILOL
  7. SPIRONOLACTONE. [Concomitant]
     Active Substance: SPIRONOLACTONE
  8. SOFOSBUVIR 400 GILEAD SCIENCES, INC. [Suspect]
     Active Substance: SOFOSBUVIR
     Indication: HEPATITIS C
     Dosage: 400 1X  DAILY ORAL
     Route: 048
     Dates: start: 20141108, end: 20150123
  9. ASPIRIN. [Concomitant]
     Active Substance: ASPIRIN
  10. DIGOXIN. [Concomitant]
     Active Substance: DIGOXIN
  11. CLARITIN [Concomitant]
     Active Substance: LORATADINE
  12. LASIX [Concomitant]
     Active Substance: FUROSEMIDE
  13. GABAPENTIN. [Concomitant]
     Active Substance: GABAPENTIN
  14. USINOPRIL [Concomitant]
  15. LEVEMIR [Concomitant]
     Active Substance: INSULIN DETEMIR

REACTIONS (2)
  - Leg amputation [None]
  - Gangrene [None]

NARRATIVE: CASE EVENT DATE: 20150123
